FAERS Safety Report 9393248 (Version 1)
Quarter: 2013Q3

REPORT INFORMATION
  Report Type: Spontaneous
  Country: GB (occurrence: GB)
  Receive Date: 20130710
  Receipt Date: 20130710
  Transmission Date: 20140515
  Serious: Yes (Disabling)
  Sender: FDA-Public Use
  Company Number: GB-PFIZER INC-2013200976

PATIENT
  Age: 31 Year
  Sex: Male
  Weight: 76 kg

DRUGS (1)
  1. CHAMPIX [Suspect]
     Dosage: UNK
     Dates: start: 20130426

REACTIONS (4)
  - Affective disorder [Not Recovered/Not Resolved]
  - Irritability [Unknown]
  - Anger [Unknown]
  - Restlessness [Unknown]
